FAERS Safety Report 8257862-X (Version None)
Quarter: 2012Q1

REPORT INFORMATION
  Report Type: 
  Country: None (occurrence: None)
  Receive Date: 20111211
  Receipt Date: 20110809
  Transmission Date: 20120608
  Serious: No
  Sender: FDA-Public Use
  Company Number: 201108001

PATIENT
  Age: 64 Year
  Sex: Male

DRUGS (7)
  1. AMLODIPINE [Concomitant]
  2. EXFORGE (AMLODIPINE BESILATE) [Concomitant]
  3. ANESTHETICS, LOCAL (ANESTHETICS, LOCAL) [Suspect]
     Dosage: 1 IN 1 D, INJECTION
     Dates: start: 20110729, end: 20110729
  4. SIMVASTATIN [Concomitant]
  5. XIAFLEX (CLOSTRIDIAL COLLAGENASE) [Suspect]
     Indication: DUPUYTREN'S CONTRACTURE
     Dosage: 0.58 MG, 1 IN 1 D, INTRALESIONAL
     Route: 026
     Dates: start: 20110728, end: 20110728
  6. METOPROLOL TARTRATE [Concomitant]
  7. GLYBURIDE-METFORMIN (METFORMIN HYDROCHLORIDE) [Concomitant]

REACTIONS (1)
  - DRUG INEFFECTIVE [None]
